FAERS Safety Report 7751729-9 (Version None)
Quarter: 2011Q3

REPORT INFORMATION
  Report Type: 
  Country: None (occurrence: None)
  Receive Date: 20110915
  Receipt Date: 20110909
  Transmission Date: 20111222
  Serious: Yes (Hospitalization)
  Sender: FDA-Public Use
  Company Number: US-BIOGENIDEC-2011BI035014

PATIENT
  Age: 49 Year
  Sex: Female

DRUGS (3)
  1. AVONEX [Concomitant]
     Indication: MULTIPLE SCLEROSIS
     Route: 030
     Dates: start: 19980501
  2. TYSABRI [Suspect]
     Indication: MULTIPLE SCLEROSIS
     Route: 042
     Dates: start: 20110421
  3. TYSABRI [Suspect]
     Route: 042
     Dates: start: 20080122, end: 20100816

REACTIONS (2)
  - DEPRESSED LEVEL OF CONSCIOUSNESS [None]
  - UROSEPSIS [None]
